FAERS Safety Report 13002668 (Version 1)
Quarter: 2016Q4

REPORT INFORMATION
  Report Type: Spontaneous
  Country: NL (occurrence: NL)
  Receive Date: 20161206
  Receipt Date: 20161206
  Transmission Date: 20170207
  Serious: Yes (Other)
  Sender: FDA-Public Use
  Company Number: PHHY2016NL164677

PATIENT
  Sex: Male

DRUGS (2)
  1. DEXAMETHASONE. [Concomitant]
     Active Substance: DEXAMETHASONE
     Indication: PRODUCT USED FOR UNKNOWN INDICATION
     Route: 065
  2. EVEROLIMUS [Suspect]
     Active Substance: EVEROLIMUS
     Indication: RENAL CELL CARCINOMA
     Dosage: UNK
     Route: 065

REACTIONS (9)
  - Malaise [Unknown]
  - Headache [Unknown]
  - Mobility decreased [Not Recovered/Not Resolved]
  - Tremor [Unknown]
  - Nausea [Unknown]
  - Abasia [Unknown]
  - Metastases to bone [Unknown]
  - Frustration tolerance decreased [Unknown]
  - Anxiety [Unknown]
